FAERS Safety Report 11052507 (Version 2)
Quarter: 2015Q2

REPORT INFORMATION
  Report Type: Spontaneous
  Country: US (occurrence: US)
  Receive Date: 20150421
  Receipt Date: 20150501
  Transmission Date: 20150821
  Serious: No
  Sender: FDA-Public Use
  Company Number: US-PFIZER INC-2015132411

PATIENT
  Sex: Female

DRUGS (1)
  1. DEPO-PROVERA [Suspect]
     Active Substance: MEDROXYPROGESTERONE ACETATE
     Dosage: UNK

REACTIONS (11)
  - Apathy [Unknown]
  - Blood oestrogen increased [Unknown]
  - Anxiety [Unknown]
  - Dyspepsia [Unknown]
  - Fatigue [Unknown]
  - Insomnia [Unknown]
  - Abdominal pain [Unknown]
  - Goitre [Unknown]
  - Myalgia [Unknown]
  - Muscle disorder [Unknown]
  - Weight increased [Unknown]
